FAERS Safety Report 25209197 (Version 1)
Quarter: 2025Q2

REPORT INFORMATION
  Report Type: Spontaneous
  Country: EG (occurrence: EG)
  Receive Date: 20250417
  Receipt Date: 20250417
  Transmission Date: 20250716
  Serious: Yes (Hospitalization, Other)
  Sender: HIKMA
  Company Number: EG-HIKMA PHARMACEUTICALS-EG-H14001-25-03386

PATIENT
  Age: 58 Year
  Sex: Female
  Weight: 85 kg

DRUGS (6)
  1. CARBOPLATIN [Suspect]
     Active Substance: CARBOPLATIN
     Indication: Chronic myeloid leukaemia
     Dosage: 130 MILLIGRAM, WEEKLY
     Route: 065
     Dates: start: 20250309
  2. PACLITAXEL [Suspect]
     Active Substance: PACLITAXEL
     Indication: Chronic myeloid leukaemia
     Dosage: 130 MILLIGRAM, WEEKLY
     Route: 065
     Dates: start: 20250309
  3. DEXAMETHASONE [Concomitant]
     Active Substance: DEXAMETHASONE
     Indication: Chemotherapy side effect prophylaxis
     Route: 065
  4. GRANISETRON [Concomitant]
     Active Substance: GRANISETRON
     Indication: Chemotherapy side effect prophylaxis
     Route: 065
  5. PIRAFENE [Concomitant]
     Indication: Chemotherapy side effect prophylaxis
     Route: 065
  6. PROTOFIX [Concomitant]
     Indication: Chemotherapy side effect prophylaxis
     Route: 065

REACTIONS (7)
  - Tongue biting [Unknown]
  - Seizure [Unknown]
  - Salivary hypersecretion [Unknown]
  - Bronchospasm [Unknown]
  - Tongue oedema [Unknown]
  - Dyspnoea [Unknown]
  - Hypersensitivity [Unknown]
